FAERS Safety Report 4291951-X (Version None)
Quarter: 2004Q1

REPORT INFORMATION
  Report Type: 
  Country: None (occurrence: None)
  Receive Date: 20040126
  Receipt Date: 20031022
  Transmission Date: 20041129
  Serious: No
  Sender: FDA-Public Use
  Company Number: USA030946671

PATIENT
  Age: 71 Year
  Sex: Male
  Weight: 74 kg

DRUGS (7)
  1. FORTEO [Suspect]
     Indication: OSTEOPOROSIS
     Dosage: 20 UG/DAY
     Dates: start: 20030806
  2. MICARDIS [Concomitant]
  3. ASPIRIN [Concomitant]
  4. GLUCOSAMINE [Concomitant]
  5. MULTI-VITAMINS [Concomitant]
  6. PROSCAR [Concomitant]
  7. ZANTAC [Concomitant]

REACTIONS (4)
  - BLOOD PRESSURE INCREASED [None]
  - FATIGUE [None]
  - HEADACHE [None]
  - HYPERCALCAEMIA [None]
